FAERS Safety Report 9512557 (Version 2)
Quarter: 2014Q1

REPORT INFORMATION
  Report Type: Spontaneous
  Country: US (occurrence: US)
  Receive Date: 20130910
  Receipt Date: 20140128
  Transmission Date: 20141002
  Serious: No
  Sender: FDA-Public Use
  Company Number: US-009507513-1309USA002242

PATIENT
  Age: 62 Year
  Sex: Male
  Weight: 75.74 kg

DRUGS (3)
  1. CLARITIN [Suspect]
     Indication: NASAL CONGESTION
     Dosage: 10 MG, QD
     Route: 048
     Dates: start: 20130827, end: 20130828
  2. CLARITIN [Suspect]
     Indication: MEDICAL OBSERVATION
  3. AVELOX [Suspect]
     Indication: PRODUCT USED FOR UNKNOWN INDICATION
     Dosage: UNK, UNKNOWN

REACTIONS (5)
  - Insomnia [Recovered/Resolved]
  - Nightmare [Recovered/Resolved]
  - Night sweats [Recovered/Resolved]
  - Nasal congestion [Recovered/Resolved]
  - Rhinorrhoea [Unknown]
